FAERS Safety Report 7060663-1 (Version None)
Quarter: 2010Q4

REPORT INFORMATION
  Report Type: 
  Country: None (occurrence: None)
  Receive Date: 20101025
  Receipt Date: 20101018
  Transmission Date: 20110411
  Serious: Yes (Other)
  Sender: FDA-Public Use
  Company Number: US-ELI_LILLY_AND_COMPANY-US200910005198

PATIENT
  Age: 57 Year
  Sex: Female
  Weight: 122.45 kg

DRUGS (2)
  1. BYETTA [Suspect]
     Dosage: UNK, UNKNOWN
     Route: 065
     Dates: start: 20070305, end: 20080914
  2. GLUCOPHAGE [Concomitant]

REACTIONS (1)
  - PANCREATITIS ACUTE [None]
